FAERS Safety Report 23367057 (Version 2)
Quarter: 2024Q1

REPORT INFORMATION
  Report Type: Report from Study
  Country: US (occurrence: US)
  Receive Date: 20240104
  Receipt Date: 20240105
  Transmission Date: 20240410
  Serious: Yes (Other)
  Sender: FDA-Public Use
  Company Number: US-PFIZER INC-PV202300208808

PATIENT
  Age: 50 Year
  Sex: Female

DRUGS (9)
  1. OXALIPLATIN [Suspect]
     Active Substance: OXALIPLATIN
     Indication: Colorectal cancer
     Dosage: UNK UNK, CYCLIC
  2. IRINOTECAN HYDROCHLORIDE [Suspect]
     Active Substance: IRINOTECAN HYDROCHLORIDE
     Indication: Colorectal cancer
     Dosage: UNK UNK, CYCLIC
  3. LEUCOVORIN CALCIUM [Suspect]
     Active Substance: LEUCOVORIN CALCIUM
     Indication: Colorectal cancer
     Dosage: UNK UNK, CYCLIC
  4. FLUOROURACIL [Suspect]
     Active Substance: FLUOROURACIL
     Indication: Colorectal cancer
     Dosage: UNK UNK, CYCLIC
  5. COBIMETINIB [Concomitant]
     Active Substance: COBIMETINIB
     Dosage: UNK UNK, CYCLIC
  6. ATEZOLIZUMAB [Concomitant]
     Active Substance: ATEZOLIZUMAB
     Dosage: UNK UNK, CYCLIC
  7. IPILIMUMAB [Concomitant]
     Active Substance: IPILIMUMAB
     Dosage: UNK UNK, CYCLIC
  8. NIVOLUMAB [Concomitant]
     Active Substance: NIVOLUMAB
     Dosage: UNK UNK, CYCLIC
  9. TRAMETINIB [Concomitant]
     Active Substance: TRAMETINIB
     Dosage: UNK UNK, CYCLIC

REACTIONS (2)
  - Pericardial effusion [Unknown]
  - Thyroiditis [Unknown]
